FAERS Safety Report 21076867 (Version 1)
Quarter: 2022Q3

REPORT INFORMATION
  Report Type: Spontaneous
  Country: US (occurrence: US)
  Receive Date: 20220713
  Receipt Date: 20220713
  Transmission Date: 20221026
  Serious: No
  Sender: FDA-Public Use
  Company Number: US-PFIZER INC-202200944377

PATIENT
  Age: 43 Year
  Sex: Female

DRUGS (6)
  1. PAXLOVID [Suspect]
     Active Substance: NIRMATRELVIR\RITONAVIR
     Indication: COVID-19 treatment
     Dosage: UNK
     Dates: start: 20220630, end: 20220705
  2. ACYCLOVIR [Concomitant]
     Active Substance: ACYCLOVIR
     Dosage: UNK
     Dates: start: 200208
  3. RAINBOW LIGHT MULTIVITAMIN [Concomitant]
     Dosage: UNK
     Dates: start: 202203
  4. NATURE^S PATH VITAMIN D [Concomitant]
     Dosage: UNK
     Dates: start: 202205
  5. LEGENDAIRY MILK SUNFLOWER LECITHIN [Concomitant]
     Dosage: UNK
     Dates: start: 202201
  6. GARDEN OF LIFE PROBIOTICS [Concomitant]
     Dosage: UNK
     Dates: start: 202001

REACTIONS (2)
  - COVID-19 [Not Recovered/Not Resolved]
  - Disease recurrence [Not Recovered/Not Resolved]

NARRATIVE: CASE EVENT DATE: 20220708
